FAERS Safety Report 17043016 (Version 3)
Quarter: 2020Q1

REPORT INFORMATION
  Report Type: Report from Study
  Country: US (occurrence: US)
  Receive Date: 20191118
  Receipt Date: 20200117
  Transmission Date: 20200409
  Serious: Yes (Hospitalization)
  Sender: FDA-Public Use
  Company Number: US-KYOWAKIRIN-2019BKK017936

PATIENT

DRUGS (1)
  1. NOURIANZ [Suspect]
     Active Substance: ISTRADEFYLLINE
     Indication: PARKINSON^S DISEASE
     Dosage: 20 MG, QD
     Route: 065
     Dates: start: 20191110, end: 201911

REACTIONS (4)
  - Adverse drug reaction [Unknown]
  - Fall [Unknown]
  - Open fracture [Unknown]
  - Confusional state [Unknown]

NARRATIVE: CASE EVENT DATE: 201911
